FAERS Safety Report 9172581 (Version 1)
Quarter: 2013Q1

REPORT INFORMATION
  Report Type: Spontaneous
  Country: FR (occurrence: FR)
  Receive Date: 20130319
  Receipt Date: 20130319
  Transmission Date: 20140127
  Serious: Yes (Hospitalization, Other)
  Sender: FDA-Public Use
  Company Number: FR-PFIZER INC-2013086961

PATIENT
  Age: 64 Year
  Sex: Female

DRUGS (4)
  1. TAHOR [Suspect]
     Dosage: 40 MG, 1X/DAY
     Route: 048
     Dates: start: 201202, end: 201212
  2. LYRICA [Suspect]
     Dosage: UNK
     Route: 048
     Dates: start: 201202, end: 201212
  3. BIPRETERAX [Suspect]
     Dosage: UNK
     Route: 048
     Dates: start: 201208, end: 201212
  4. KARDEGIC [Concomitant]
     Dosage: UNK
     Route: 048
     Dates: start: 201202, end: 201212

REACTIONS (3)
  - Jaundice cholestatic [Recovered/Resolved]
  - Condition aggravated [Recovered/Resolved]
  - Eosinophilia [Unknown]
